FAERS Safety Report 5708069-9 (Version None)
Quarter: 2008Q2

REPORT INFORMATION
  Report Type: 
  Country: None (occurrence: None)
  Receive Date: 20080417
  Receipt Date: 20080404
  Transmission Date: 20081010
  Serious: Yes (Other)
  Sender: FDA-Public Use
  Company Number: DE-ELI_LILLY_AND_COMPANY-DE200804001180

PATIENT
  Sex: Female

DRUGS (2)
  1. FORTEO [Suspect]
     Indication: OSTEOPOROSIS
     Dosage: UNK, DAILY (1/D)
     Route: 058
     Dates: start: 20080301
  2. IBU [Concomitant]
     Indication: PAIN
     Dosage: UNK, UNKNOWN

REACTIONS (5)
  - DIZZINESS [None]
  - DYSPEPSIA [None]
  - NAUSEA [None]
  - NIGHT SWEATS [None]
  - SPINAL DISORDER [None]
